FAERS Safety Report 22641460 (Version 1)
Quarter: 2023Q2

REPORT INFORMATION
  Report Type: Report from Study
  Country: CA (occurrence: CA)
  Receive Date: 20230626
  Receipt Date: 20230626
  Transmission Date: 20230721
  Serious: Yes (Death)
  Sender: FDA-Public Use
  Company Number: CA-PFIZER INC-202300228438

PATIENT
  Age: 56 Year
  Sex: Male

DRUGS (34)
  1. RITUXIMAB [Suspect]
     Active Substance: RITUXIMAB
     Indication: Vasculitis
     Dosage: 500.0 MG, TOTAL
     Route: 042
  2. RITUXIMAB [Suspect]
     Active Substance: RITUXIMAB
     Indication: Microscopic polyangiitis
  3. RITUXIMAB [Suspect]
     Active Substance: RITUXIMAB
     Indication: Interstitial lung disease
  4. RITUXIMAB [Suspect]
     Active Substance: RITUXIMAB
     Indication: Granulomatosis with polyangiitis
  5. RITUXIMAB [Suspect]
     Active Substance: RITUXIMAB
     Indication: Vasculitis
     Dosage: 1000 MG
     Route: 042
  6. RITUXIMAB [Suspect]
     Active Substance: RITUXIMAB
     Indication: Microscopic polyangiitis
  7. RITUXIMAB [Suspect]
     Active Substance: RITUXIMAB
     Indication: Interstitial lung disease
  8. RITUXIMAB [Suspect]
     Active Substance: RITUXIMAB
     Indication: Granulomatosis with polyangiitis
  9. AMLODIPINE [Concomitant]
     Active Substance: AMLODIPINE BESYLATE
     Route: 065
  10. ARANESP [Concomitant]
     Active Substance: DARBEPOETIN ALFA
  11. BENADRYL [Concomitant]
     Active Substance: DIPHENHYDRAMINE HYDROCHLORIDE
     Indication: Premedication
     Dosage: 50 MG
     Route: 048
  12. CALCIUM CARBONATE [Concomitant]
     Active Substance: CALCIUM CARBONATE
  13. CINACALCET [Concomitant]
     Active Substance: CINACALCET
  14. CIPROFLOXACIN [Concomitant]
     Active Substance: CIPROFLOXACIN
  15. DILAUDID [Concomitant]
     Active Substance: HYDROMORPHONE HYDROCHLORIDE
  16. DOLUTEGRAVIR SODIUM [Concomitant]
     Active Substance: DOLUTEGRAVIR SODIUM
  17. EDURANT [Concomitant]
     Active Substance: RILPIVIRINE HYDROCHLORIDE
  18. ELIQUIS [Concomitant]
     Active Substance: APIXABAN
  19. FUROSEMIDE [Concomitant]
     Active Substance: FUROSEMIDE
     Route: 065
  20. IRON [Concomitant]
     Active Substance: IRON
     Route: 065
  21. JANUVIA [Concomitant]
     Active Substance: SITAGLIPTIN PHOSPHATE
     Route: 048
  22. LACTULOSE [Concomitant]
     Active Substance: LACTULOSE
  23. LANTUS [Concomitant]
     Active Substance: INSULIN GLARGINE
  24. MEPRON [Concomitant]
     Active Substance: ATOVAQUONE
  25. METOPROLOL [Concomitant]
     Active Substance: METOPROLOL
  26. PERINDOPRIL [Concomitant]
     Active Substance: PERINDOPRIL
  27. PREDNISONE [Concomitant]
     Active Substance: PREDNISONE
  28. RANITIDINE [Concomitant]
     Active Substance: RANITIDINE
  29. ROSUVASTATIN [Concomitant]
     Active Substance: ROSUVASTATIN
     Route: 058
  30. ALBUTEROL [Concomitant]
     Active Substance: ALBUTEROL
  31. SENOKOT [Concomitant]
     Active Substance: SENNOSIDES
  32. SOLU-MEDROL [Concomitant]
     Active Substance: METHYLPREDNISOLONE SODIUM SUCCINATE
     Indication: Premedication
     Dosage: 100.0 MG
     Route: 042
  33. MORPHINE SULFATE [Concomitant]
     Active Substance: MORPHINE SULFATE
  34. TYLENOL [Concomitant]
     Active Substance: ACETAMINOPHEN
     Indication: Premedication
     Dosage: 650.0 MG
     Route: 048

REACTIONS (1)
  - Death [Fatal]
